FAERS Safety Report 5136956-1 (Version None)
Quarter: 2006Q4

REPORT INFORMATION
  Report Type: 
  Country: None (occurrence: None)
  Receive Date: 20061024
  Receipt Date: 20061016
  Transmission Date: 20070319
  Serious: Yes (Other)
  Sender: FDA-Public Use
  Company Number: 2006126695

PATIENT
  Age: 67 Year
  Sex: Female
  Weight: 81.6475 kg

DRUGS (2)
  1. XALATAN [Suspect]
     Indication: INTRAOCULAR PRESSURE INCREASED
  2. WARFARIN SODIUM [Concomitant]

REACTIONS (5)
  - COUGH [None]
  - IRRITABILITY [None]
  - RASH GENERALISED [None]
  - RESPIRATORY TRACT CONGESTION [None]
  - SKIN EXFOLIATION [None]
